FAERS Safety Report 7284320-1 (Version None)
Quarter: 2011Q1

REPORT INFORMATION
  Report Type: 
  Country: None (occurrence: None)
  Receive Date: 20110209
  Receipt Date: 20110204
  Transmission Date: 20110831
  Serious: Yes (Life-Threatening, Hospitalization)
  Sender: FDA-Public Use
  Company Number: US-US-EMD SERONO, INC.-7040650

PATIENT
  Sex: Female

DRUGS (3)
  1. CIPROFLOXACIN HYDROCHLORIDE [Suspect]
     Indication: PROPHYLAXIS
     Dates: start: 20110202
  2. ZANAFLEX [Suspect]
     Indication: MUSCLE SPASMS
  3. REBIF [Suspect]
     Indication: PRODUCT USED FOR UNKNOWN INDICATION

REACTIONS (4)
  - SEPSIS [None]
  - CONSCIOUSNESS FLUCTUATING [None]
  - BLOOD PRESSURE DECREASED [None]
  - DRUG INTERACTION [None]
